FAERS Safety Report 10664686 (Version 1)
Quarter: 2014Q4

REPORT INFORMATION
  Report Type: Spontaneous
  Country: IT (occurrence: IT)
  Receive Date: 20141219
  Receipt Date: 20141219
  Transmission Date: 20150529
  Serious: Yes (Other)
  Sender: FDA-Public Use
  Company Number: IT-009507513-1412ITA007690

PATIENT
  Age: 66 Year
  Sex: Female

DRUGS (3)
  1. RIBAVIRIN. [Suspect]
     Active Substance: RIBAVIRIN
     Indication: HEPATIC CIRRHOSIS
     Dosage: 1200 MG, QD
     Route: 048
     Dates: start: 20131007, end: 20140107
  2. PEGASYS [Suspect]
     Active Substance: PEGINTERFERON ALFA-2A
     Indication: HEPATIC CIRRHOSIS
     Dosage: 180 MICROGRAM, WEEKLY
     Route: 058
     Dates: start: 20131007, end: 20140107
  3. TELAPREVIR [Suspect]
     Active Substance: TELAPREVIR
     Indication: HEPATIC CIRRHOSIS
     Dosage: 2250 MG, DAILY
     Route: 048
     Dates: start: 20131103, end: 20140107

REACTIONS (2)
  - Anaemia [Recovering/Resolving]
  - Rash [Recovering/Resolving]

NARRATIVE: CASE EVENT DATE: 20140103
